FAERS Safety Report 6824145-1 (Version None)
Quarter: 2010Q3

REPORT INFORMATION
  Report Type: 
  Country: None (occurrence: None)
  Receive Date: 20100708
  Receipt Date: 20061006
  Transmission Date: 20110219
  Serious: No
  Sender: FDA-Public Use
  Company Number: US-PFIZER INC-2006124126

PATIENT
  Sex: Male
  Weight: 113.4 kg

DRUGS (6)
  1. CHANTIX [Suspect]
     Indication: SMOKING CESSATION THERAPY
     Dates: start: 20060901
  2. LIPITOR [Concomitant]
  3. TORSEMIDE [Concomitant]
  4. SPIRONOLACTONE [Concomitant]
  5. VITAMINS [Concomitant]
  6. WELLBUTRIN [Concomitant]

REACTIONS (8)
  - ABDOMINAL PAIN [None]
  - CONSTIPATION [None]
  - DIARRHOEA [None]
  - FAECES DISCOLOURED [None]
  - HEADACHE [None]
  - NAUSEA [None]
  - POOR QUALITY SLEEP [None]
  - THIRST [None]
